FAERS Safety Report 6057016-1 (Version None)
Quarter: 2009Q1

REPORT INFORMATION
  Report Type: 
  Country: None (occurrence: None)
  Receive Date: 20090129
  Receipt Date: 20090121
  Transmission Date: 20090719
  Serious: Yes (Other)
  Sender: FDA-Public Use
  Company Number: US-AMGEN-QUU329549

PATIENT
  Sex: Male

DRUGS (1)
  1. ENBREL [Suspect]
     Indication: PSORIASIS
     Route: 058
     Dates: start: 20030301

REACTIONS (6)
  - DIABETES MELLITUS [None]
  - INFLUENZA [None]
  - INJECTION SITE PAIN [None]
  - NASOPHARYNGITIS [None]
  - PSORIASIS [None]
  - WEIGHT INCREASED [None]
